FAERS Safety Report 7625649-4 (Version None)
Quarter: 2011Q3

REPORT INFORMATION
  Report Type: 
  Country: None (occurrence: None)
  Receive Date: 20110721
  Receipt Date: 20110708
  Transmission Date: 20111222
  Serious: Yes (Other)
  Sender: FDA-Public Use
  Company Number: GB-ASTRAZENECA-2011SE40881

PATIENT
  Age: 75 Year
  Sex: Male
  Weight: 90 kg

DRUGS (6)
  1. CITALOPRAM [Concomitant]
     Route: 048
     Dates: start: 20060101
  2. LIPITOR [Suspect]
     Indication: HYPERCHOLESTEROLAEMIA
     Route: 048
     Dates: start: 20060101, end: 20110101
  3. DUTASTERIDE [Concomitant]
     Route: 048
     Dates: start: 20060101
  4. ASPIRIN [Concomitant]
     Route: 048
     Dates: start: 20060101
  5. CRESTOR [Suspect]
     Indication: HYPERCHOLESTEROLAEMIA
     Route: 048
     Dates: start: 20110101
  6. BISOPROLOL [Concomitant]
     Route: 048
     Dates: start: 20060101

REACTIONS (4)
  - AGGRESSION [None]
  - NIGHTMARE [None]
  - POOR QUALITY SLEEP [None]
  - SLEEP TALKING [None]
